FAERS Safety Report 22790427 (Version 2)
Quarter: 2024Q1

REPORT INFORMATION
  Report Type: Report from Study
  Country: GB (occurrence: GB)
  Receive Date: 20230805
  Receipt Date: 20240124
  Transmission Date: 20240410
  Serious: Yes (Other)
  Sender: FDA-Public Use
  Company Number: GB-002147023-NVSC2022GB283404

PATIENT
  Sex: Male

DRUGS (2)
  1. MAYZENT [Suspect]
     Active Substance: SIPONIMOD
     Indication: Multiple sclerosis
     Dosage: 2 MG, QD
     Route: 048
     Dates: start: 20221107
  2. MAYZENT [Suspect]
     Active Substance: SIPONIMOD
     Indication: Secondary progressive multiple sclerosis
     Dosage: 2 MG, QD
     Route: 048

REACTIONS (11)
  - Multiple sclerosis [Recovered/Resolved]
  - Gait disturbance [Unknown]
  - Back pain [Unknown]
  - Movement disorder [Unknown]
  - Musculoskeletal disorder [Unknown]
  - Urinary tract infection [Recovered/Resolved]
  - Pyrexia [Unknown]
  - Melanocytic naevus [Unknown]
  - Diplopia [Not Recovered/Not Resolved]
  - Sinusitis [Not Recovered/Not Resolved]
  - Urinary tract infection [Not Recovered/Not Resolved]

NARRATIVE: CASE EVENT DATE: 20221203
